FAERS Safety Report 15937744 (Version 1)
Quarter: 2019Q1

REPORT INFORMATION
  Report Type: Spontaneous
  Country: US (occurrence: US)
  Receive Date: 20190208
  Receipt Date: 20190208
  Transmission Date: 20190417
  Serious: No
  Sender: FDA-Public Use
  Company Number: US-AEGERION PHARMACEUTICAL, INC-AEGR003863

PATIENT
  Sex: Female
  Weight: 86.17 kg

DRUGS (3)
  1. REBIF [Suspect]
     Active Substance: INTERFERON BETA-1A
     Indication: PRODUCT USED FOR UNKNOWN INDICATION
  2. MYALEPT [Suspect]
     Active Substance: METRELEPTIN
     Indication: LIPODYSTROPHY ACQUIRED
     Dosage: 3.5 MG, QD
     Route: 058
     Dates: start: 201605
  3. MYALEPT [Suspect]
     Active Substance: METRELEPTIN
     Dosage: 2.75 MG, QD
     Route: 058
     Dates: start: 201605

REACTIONS (4)
  - Abdominal discomfort [Unknown]
  - Injection site bruising [Unknown]
  - Headache [Unknown]
  - Feeling abnormal [Unknown]
